FAERS Safety Report 22203357 (Version 1)
Quarter: 2023Q2

REPORT INFORMATION
  Report Type: Spontaneous
  Country: UZ (occurrence: UZ)
  Receive Date: 20230412
  Receipt Date: 20230412
  Transmission Date: 20230721
  Serious: Yes (Death, Hospitalization, Other)
  Sender: FDA-Public Use
  Company Number: UZ-JNJFOC-20230412130

PATIENT
  Age: 80 Year
  Sex: Female
  Weight: 30 kg

DRUGS (9)
  1. SIRTURO [Suspect]
     Active Substance: BEDAQUILINE FUMARATE
     Indication: Pulmonary tuberculosis
     Route: 048
     Dates: start: 20221125, end: 20230307
  2. SIRTURO [Suspect]
     Active Substance: BEDAQUILINE FUMARATE
     Route: 048
     Dates: start: 20230313
  3. LINEZOLID [Suspect]
     Active Substance: LINEZOLID
     Indication: Pulmonary tuberculosis
     Route: 048
     Dates: start: 20221125, end: 20230307
  4. LINEZOLID [Suspect]
     Active Substance: LINEZOLID
     Dates: start: 20230313
  5. MOXIFLOXACIN [Suspect]
     Active Substance: MOXIFLOXACIN
     Indication: Pulmonary tuberculosis
     Route: 048
     Dates: start: 20221125, end: 20230307
  6. MOXIFLOXACIN [Suspect]
     Active Substance: MOXIFLOXACIN
     Dates: start: 20230313
  7. CLOFAZIMINE [Suspect]
     Active Substance: CLOFAZIMINE
     Indication: Pulmonary tuberculosis
     Route: 048
     Dates: start: 20221125, end: 20230307
  8. CLOFAZIMINE [Suspect]
     Active Substance: CLOFAZIMINE
     Dates: start: 20230313
  9. PRETOMANID [Suspect]
     Active Substance: PRETOMANID
     Indication: Pulmonary tuberculosis
     Dates: end: 202212

REACTIONS (14)
  - Death [Fatal]
  - Electrocardiogram QT prolonged [Not Recovered/Not Resolved]
  - Dyspnoea at rest [Unknown]
  - Nausea [Not Recovered/Not Resolved]
  - Abdominal pain upper [Not Recovered/Not Resolved]
  - Dyspepsia [Not Recovered/Not Resolved]
  - Decreased appetite [Not Recovered/Not Resolved]
  - Asphyxia [Unknown]
  - Weight decreased [Unknown]
  - Bedridden [Unknown]
  - Hypotension [Unknown]
  - Pulse abnormal [Unknown]
  - Oedema peripheral [Unknown]
  - Oxygen saturation decreased [Unknown]

NARRATIVE: CASE EVENT DATE: 20221215
